FAERS Safety Report 5661112-8 (Version None)
Quarter: 2008Q1

REPORT INFORMATION
  Report Type: 
  Country: None (occurrence: None)
  Receive Date: 20080305
  Receipt Date: 20080223
  Transmission Date: 20080703
  Serious: Yes (Other)
  Sender: FDA-Public Use
  Company Number: 2008004750

PATIENT
  Sex: Female

DRUGS (1)
  1. BENADRYL ALLERGY QUICK DISSOLVE STRIPS (DIPHENHYDRAMINE) [Suspect]
     Dosage: ONE, FOR THE FIRST TIME, ORAL
     Route: 048
     Dates: start: 20080222, end: 20080222

REACTIONS (1)
  - HYPOAESTHESIA [None]
